FAERS Safety Report 7072142-6 (Version None)
Quarter: 2010Q4

REPORT INFORMATION
  Report Type: 
  Country: None (occurrence: None)
  Receive Date: 20101028
  Receipt Date: 20101028
  Transmission Date: 20110411
  Serious: No
  Sender: FDA-Public Use
  Company Number: None

PATIENT
  Age: 39 Year
  Sex: Female
  Weight: 68.0396 kg

DRUGS (1)
  1. COLGATE TOTAL [Suspect]
     Indication: DENTAL DISORDER PROPHYLAXIS
     Dosage: ONE STRIP ON TOOTHBRUSH TWICE DAILY DENTAL
     Route: 004
     Dates: start: 20101011, end: 20101026

REACTIONS (3)
  - NEURALGIA [None]
  - REACTION TO DRUG EXCIPIENTS [None]
  - TOOTHACHE [None]
